FAERS Safety Report 9540228 (Version 1)
Quarter: 2013Q3

REPORT INFORMATION
  Report Type: Spontaneous
  Country: AU (occurrence: AU)
  Receive Date: 20130920
  Receipt Date: 20130920
  Transmission Date: 20140515
  Serious: Yes (Other)
  Sender: FDA-Public Use
  Company Number: AU-PURDUE-USA-2013-0106444

PATIENT
  Age: 44 Year
  Sex: Male

DRUGS (1)
  1. OXYCONTIN (NDA 22-272) [Suspect]
     Indication: ANALGESIC THERAPY
     Dosage: 160 MG, DAILY
     Route: 048

REACTIONS (2)
  - Suicide attempt [Unknown]
  - Mental impairment [Unknown]
